FAERS Safety Report 24270909 (Version 1)
Quarter: 2024Q3

REPORT INFORMATION
  Report Type: Spontaneous
  Country: CN (occurrence: CN)
  Receive Date: 20240831
  Receipt Date: 20240831
  Transmission Date: 20241017
  Serious: Yes (Hospitalization, Other)
  Sender: ABBVIE
  Company Number: CN-ABBVIE-5899792

PATIENT
  Age: 53 Year
  Sex: Female
  Weight: 75 kg

DRUGS (5)
  1. VENETOCLAX [Suspect]
     Active Substance: VENETOCLAX
     Indication: Acute leukaemia
     Route: 048
     Dates: start: 20240705, end: 20240712
  2. VINDESINE SULFATE [Suspect]
     Active Substance: VINDESINE SULFATE
     Indication: Neoplasm prophylaxis
     Route: 041
     Dates: start: 20240705, end: 20240711
  3. DECITABINE [Suspect]
     Active Substance: DECITABINE
     Indication: Neoplasm prophylaxis
     Route: 041
     Dates: start: 20240705, end: 20240711
  4. CYCLOPHOSPHAMIDE [Suspect]
     Active Substance: CYCLOPHOSPHAMIDE
     Indication: Neoplasm prophylaxis
     Route: 041
     Dates: start: 20240705, end: 20240706
  5. DAB [Suspect]
     Active Substance: BENZALKONIUM CHLORIDE
     Indication: Neoplasm prophylaxis
     Route: 065

REACTIONS (5)
  - Myelosuppression [Recovering/Resolving]
  - Agranulocytosis [Unknown]
  - Immunodeficiency [Unknown]
  - Respiratory tract infection [Unknown]
  - White blood cell count increased [Unknown]

NARRATIVE: CASE EVENT DATE: 20240101
